FAERS Safety Report 9852441 (Version 3)
Quarter: 2014Q4

REPORT INFORMATION
  Report Type: Spontaneous
  Country: AU (occurrence: AU)
  Receive Date: 20140129
  Receipt Date: 20141010
  Transmission Date: 20150529
  Serious: Yes (Hospitalization)
  Sender: FDA-Public Use
  Company Number: AU-BAYER-2014-011185

PATIENT
  Age: 74 Year
  Sex: Male

DRUGS (1)
  1. LEVITRA [Suspect]
     Active Substance: VARDENAFIL HYDROCHLORIDE TRIHYDRATE
     Dosage: OVER A PERIOD OF 2 MONTHS HAD TAKEN FOUR 20 MG TABLETS

REACTIONS (3)
  - Drug ineffective [None]
  - Vision blurred [Recovered/Resolved]
  - Headache [None]

NARRATIVE: CASE EVENT DATE: 20131227
